FAERS Safety Report 18103825 (Version 2)
Quarter: 2022Q3

REPORT INFORMATION
  Report Type: Report from Study
  Country: JP (occurrence: JP)
  Receive Date: 20200803
  Receipt Date: 20220719
  Transmission Date: 20221027
  Serious: Yes (Life-Threatening, Hospitalization, Other)
  Sender: FDA-Public Use
  Company Number: JP-PFIZER INC-2020265008

PATIENT
  Age: 56 Year
  Sex: Female
  Weight: 55 kg

DRUGS (12)
  1. BESPONSA [Suspect]
     Active Substance: INOTUZUMAB OZOGAMICIN
     Indication: Acute lymphocytic leukaemia recurrent
     Dosage: 0.8 MG/M2, CYCLIC (1X/DAY)
     Route: 041
     Dates: start: 20200227
  2. BESPONSA [Suspect]
     Active Substance: INOTUZUMAB OZOGAMICIN
     Dosage: 0.5 MG/M2, CYCLIC (1X/DAY)
     Route: 041
     Dates: start: 20200305
  3. BESPONSA [Suspect]
     Active Substance: INOTUZUMAB OZOGAMICIN
     Dosage: 0.5 MG/M2, CYCLIC (1X/DAY)
     Route: 041
     Dates: start: 20200312
  4. LEVOFLOXACIN [Concomitant]
     Active Substance: LEVOFLOXACIN
     Dosage: 500 MG, 1X/DAY
     Route: 048
     Dates: start: 20200229, end: 20200421
  5. FLUCONAZOLE [Concomitant]
     Active Substance: FLUCONAZOLE
     Dosage: 100 MG, 1X/DAY
     Route: 048
     Dates: start: 20200229, end: 20200421
  6. SULFAMETHOXAZOLE\TRIMETHOPRIM [Concomitant]
     Active Substance: SULFAMETHOXAZOLE\TRIMETHOPRIM
     Dosage: UNK, 1X/DAY
     Route: 048
     Dates: start: 20200303, end: 20200414
  7. BLINCYTO [Concomitant]
     Active Substance: BLINATUMOMAB
     Dosage: 9 UG, 1X/DAY
     Route: 041
     Dates: start: 20200327, end: 20200402
  8. BLINCYTO [Concomitant]
     Active Substance: BLINATUMOMAB
     Dosage: 28 UG, 1X/DAY
     Route: 041
     Dates: start: 20200403, end: 20200423
  9. FLUDARA [Concomitant]
     Active Substance: FLUDARABINE PHOSPHATE
     Dosage: 47 MG, 1X/DAY
     Route: 041
     Dates: start: 20200515, end: 20200519
  10. ALKERAN [Concomitant]
     Active Substance: MELPHALAN
     Dosage: 110 MG, 1X/DAY
     Route: 041
     Dates: start: 20200518, end: 20200519
  11. PROGRAF [Concomitant]
     Active Substance: TACROLIMUS
     Dosage: 1 MG, 1X/DAY
     Route: 041
     Dates: start: 20200520
  12. CLOFARABINE [Concomitant]
     Active Substance: CLOFARABINE
     Dosage: 40 MG, 1X/DAY
     Route: 041
     Dates: start: 20200502, end: 20200506

REACTIONS (1)
  - Venoocclusive liver disease [Recovering/Resolving]

NARRATIVE: CASE EVENT DATE: 20200617
